FAERS Safety Report 4979737-1 (Version None)
Quarter: 2006Q2

REPORT INFORMATION
  Report Type: 
  Country: None (occurrence: None)
  Receive Date: 20060421
  Receipt Date: 20060410
  Transmission Date: 20061013
  Serious: Yes (Other)
  Sender: FDA-Public Use
  Company Number: US-SOLVAY-00206001224

PATIENT
  Age: 11487 Day
  Sex: Male
  Weight: 109 kg

DRUGS (11)
  1. METHADONE [Concomitant]
     Indication: PAIN
     Dosage: DAILY DOSE:  UNKNOWN
     Route: 048
  2. ANDROGEL [Suspect]
     Indication: BLOOD TESTOSTERONE DECREASED
     Dosage: DAILY DOSE:  UNKNOWN
     Route: 062
     Dates: start: 20060406, end: 20060406
  3. ZANAFLEX [Concomitant]
     Indication: MUSCLE RELAXANT THERAPY
     Dosage: DAILY DOSE:  UNKNOWN
     Route: 048
  4. ZOLFRAN [Concomitant]
     Indication: NAUSEA
     Dosage: DAILY DOSE:  UNKNOWN
     Route: 048
  5. IMITREX [Concomitant]
     Indication: HEADACHE
     Dosage: DAILY DOSE:  UNKNOWN
     Route: 065
  6. LYRICA [Concomitant]
     Indication: NEURALGIA
     Dosage: DAILY DOSE:  UNKNOWN
     Route: 048
  7. PROPRANOLOL [Concomitant]
     Indication: HEADACHE
     Dosage: DAILY DOSE:  UNKNOWN
     Route: 048
     Dates: end: 20060405
  8. EFFEXOR [Concomitant]
     Indication: DEPRESSION
     Dosage: DAILY DOSE:  UNKNOWN
     Route: 048
     Dates: start: 19990101
  9. WELLBUTRIN [Concomitant]
     Indication: DEPRESSION
     Dosage: DAILY DOSE:  UNKNOWN
     Route: 048
     Dates: start: 19990101
  10. DEPAKOTE [Concomitant]
     Indication: DEPRESSION
     Dosage: DAILY DOSE:  UNKNOWN
     Route: 048
     Dates: start: 19990101
  11. LORAZEPAM [Concomitant]
     Indication: DEPRESSION
     Dosage: DAILY DOSE:  UNKNOWN
     Route: 065
     Dates: start: 19990101

REACTIONS (2)
  - DYSPNOEA [None]
  - THROAT TIGHTNESS [None]
